FAERS Safety Report 5212399-7 (Version None)
Quarter: 2007Q1

REPORT INFORMATION
  Report Type: 
  Country: None (occurrence: None)
  Receive Date: 20070118
  Receipt Date: 20070106
  Transmission Date: 20070707
  Serious: Yes (Other)
  Sender: FDA-Public Use
  Company Number: US-PFIZER INC-2007002719

PATIENT
  Age: 36 Year
  Sex: Female
  Weight: 49.9 kg

DRUGS (3)
  1. NEURONTIN [Suspect]
     Indication: ANXIETY
  2. EFFEXOR [Concomitant]
     Indication: DEPRESSION
  3. EFFEXOR [Concomitant]
     Indication: ANXIETY

REACTIONS (1)
  - SYSTEMIC LUPUS ERYTHEMATOSUS [None]
